FAERS Safety Report 24798486 (Version 1)
Quarter: 2025Q1

REPORT INFORMATION
  Report Type: Spontaneous
  Country: US (occurrence: US)
  Receive Date: 20250102
  Receipt Date: 20250102
  Transmission Date: 20250409
  Serious: Yes (Death, Hospitalization)
  Sender: STRIDES
  Company Number: US-STRIDES ARCOLAB LIMITED-2024SP017294

PATIENT

DRUGS (10)
  1. PREDNISOLONE [Suspect]
     Active Substance: PREDNISOLONE
     Indication: Drug-induced liver injury
     Route: 065
  2. PREDNISOLONE [Suspect]
     Active Substance: PREDNISOLONE
     Indication: Drug reaction with eosinophilia and systemic symptoms
  3. CYCLOSPORINE [Suspect]
     Active Substance: CYCLOSPORINE
     Indication: Hodgkin^s disease
     Route: 065
  4. URSODIOL [Suspect]
     Active Substance: URSODIOL
     Indication: Drug-induced liver injury
     Route: 048
  5. URSODIOL [Suspect]
     Active Substance: URSODIOL
     Route: 065
  6. METHYLPREDNISOLONE [Suspect]
     Active Substance: METHYLPREDNISOLONE
     Indication: Drug-induced liver injury
     Route: 042
  7. METHYLPREDNISOLONE [Suspect]
     Active Substance: METHYLPREDNISOLONE
     Indication: Drug reaction with eosinophilia and systemic symptoms
  8. DUPILUMAB [Suspect]
     Active Substance: DUPILUMAB
     Indication: Drug reaction with eosinophilia and systemic symptoms
     Route: 065
  9. ZONISAMIDE [Concomitant]
     Active Substance: ZONISAMIDE
     Indication: Weight control
     Route: 065
  10. ACETYLCYSTEINE [Concomitant]
     Active Substance: ACETYLCYSTEINE
     Indication: Drug-induced liver injury
     Route: 042

REACTIONS (5)
  - Hodgkin^s disease [Fatal]
  - Septic shock [Fatal]
  - Pneumonia necrotising [Fatal]
  - Drug ineffective [Fatal]
  - Off label use [Unknown]
